FAERS Safety Report 9155934 (Version 1)
Quarter: 2013Q1

REPORT INFORMATION
  Report Type: Spontaneous
  Country: CN (occurrence: CN)
  Receive Date: 20130311
  Receipt Date: 20130311
  Transmission Date: 20140127
  Serious: Yes (Other)
  Sender: FDA-Public Use
  Company Number: PHHY2012CN127809

PATIENT
  Age: 67 Year
  Sex: Male
  Weight: 56 kg

DRUGS (1)
  1. MIACALCIC / SALMON CALCITONIN [Suspect]
     Indication: OSTEOPOROSIS
     Dosage: 50 IU, QD
     Route: 030
     Dates: start: 20090909, end: 20090909

REACTIONS (5)
  - Convulsion [Unknown]
  - Unresponsive to stimuli [Unknown]
  - Hypoaesthesia oral [Unknown]
  - Irritability [Unknown]
  - Dizziness [Recovered/Resolved]
